FAERS Safety Report 9190034 (Version 1)
Quarter: 2013Q1

REPORT INFORMATION
  Report Type: Report from Study
  Country: SG (occurrence: SG)
  Receive Date: 20130326
  Receipt Date: 20130326
  Transmission Date: 20140127
  Serious: Yes (Death)
  Sender: FDA-Public Use
  Company Number: SG-SANOFI-AVENTIS-2013SA031162

PATIENT
  Sex: 0

DRUGS (3)
  1. CISPLATIN [Suspect]
     Indication: ADENOCARCINOMA GASTRIC
     Dosage: ON DAYS 1 AND 8 OF EVERY 21 DAY CYCLE
     Route: 065
  2. CAPECITABINE [Suspect]
     Indication: ADENOCARCINOMA GASTRIC
     Dosage: FROM DAY 1 TO 14, EVERY 21 DAYS
     Route: 065
  3. DOCETAXEL [Suspect]
     Indication: ADENOCARCINOMA GASTRIC
     Dosage: ON DAYS 1 AND 8 OF EVERY 21 DAY CYCLE
     Route: 065

REACTIONS (1)
  - Death [Fatal]
